FAERS Safety Report 5809400-6 (Version None)
Quarter: 2008Q3

REPORT INFORMATION
  Report Type: 
  Country: None (occurrence: None)
  Receive Date: 20080714
  Receipt Date: 20080708
  Transmission Date: 20090109
  Serious: Yes (Hospitalization, Other)
  Sender: FDA-Public Use
  Company Number: TR-ABBOTT-08P-161-0458229-00

PATIENT
  Age: 27 Year
  Sex: Male
  Weight: 70 kg

DRUGS (3)
  1. HUMIRA [Suspect]
     Indication: ANKYLOSING SPONDYLITIS
     Route: 058
     Dates: start: 20080526, end: 20080609
  2. ENSURE [Suspect]
     Indication: MEDICAL DIET
  3. INDOMETHACIN [Concomitant]
     Indication: MEDICAL DIET
     Route: 048

REACTIONS (1)
  - LOSS OF CONSCIOUSNESS [None]
